FAERS Safety Report 9083283 (Version 1)
Quarter: 2013Q1

REPORT INFORMATION
  Report Type: Spontaneous
  Country: AR (occurrence: AR)
  Receive Date: 20130218
  Receipt Date: 20130218
  Transmission Date: 20140127
  Serious: Yes (Death)
  Sender: FDA-Public Use
  Company Number: PHHY2013AR015124

PATIENT
  Sex: Female

DRUGS (2)
  1. STALEVO [Suspect]
     Indication: PARKINSON^S DISEASE
     Dosage: 100 MG, PER DAY
     Route: 048
     Dates: start: 201210
  2. STALEVO [Suspect]
     Dosage: 250 MG, PER DAY
     Route: 048
     Dates: start: 201210

REACTIONS (1)
  - Respiratory arrest [Fatal]
